FAERS Safety Report 20644335 (Version 1)
Quarter: 2022Q1

REPORT INFORMATION
  Report Type: Spontaneous
  Country: US (occurrence: None)
  Receive Date: 20220326
  Receipt Date: 20220326
  Transmission Date: 20220424
  Serious: Yes (Hospitalization)
  Sender: FDA-Public Use
  Company Number: None

PATIENT
  Age: 21 Year
  Sex: Male
  Weight: 100.2 kg

DRUGS (6)
  1. CYCLOPHOSPHAMIDE [Suspect]
     Active Substance: CYCLOPHOSPHAMIDE
     Dates: end: 20220311
  2. CYTARABINE [Suspect]
     Active Substance: CYTARABINE
     Dates: end: 20220321
  3. THIOGUANINE ANHYDROUS [Suspect]
     Active Substance: THIOGUANINE ANHYDROUS
     Dates: end: 20220324
  4. DOXORUBICIN HYDROCHLORIDE [Suspect]
     Active Substance: DOXORUBICIN HYDROCHLORIDE
     Dates: end: 20220221
  5. ONCASPAR [Suspect]
     Active Substance: PEGASPARGASE
     Dosage: OTHER STRENGTH : 3750 UNIT ;?
     Dates: end: 20220210
  6. VINCRISTINE SULFATE [Suspect]
     Active Substance: VINCRISTINE SULFATE
     Dates: end: 20220221

REACTIONS (10)
  - Asthenia [None]
  - Night sweats [None]
  - Proctalgia [None]
  - Gingival bleeding [None]
  - Pyrexia [None]
  - Chills [None]
  - Petechiae [None]
  - Anal abscess [None]
  - Pulmonary embolism [None]
  - Rash macular [None]

NARRATIVE: CASE EVENT DATE: 20220324
